FAERS Safety Report 9568161 (Version 1)
Quarter: 2013Q3

REPORT INFORMATION
  Report Type: Spontaneous
  Country: US (occurrence: US)
  Receive Date: 20130930
  Receipt Date: 20130930
  Transmission Date: 20140515
  Serious: No
  Sender: FDA-Public Use
  Company Number: US-AMGEN-USASP2013056002

PATIENT
  Age: 57 Year
  Sex: Female

DRUGS (2)
  1. ENBREL [Suspect]
     Indication: PSORIASIS
     Dosage: 25 MG, UNK
     Route: 065
     Dates: start: 2005, end: 2006
  2. SORIATANE [Concomitant]
     Dosage: 10 MG, QD
     Dates: start: 201306, end: 201307

REACTIONS (1)
  - Psoriasis [Not Recovered/Not Resolved]
